FAERS Safety Report 7953590-6 (Version None)
Quarter: 2011Q4

REPORT INFORMATION
  Report Type: 
  Country: None (occurrence: None)
  Receive Date: 20111202
  Receipt Date: 20111129
  Transmission Date: 20120403
  Serious: Yes (Death, Other)
  Sender: FDA-Public Use
  Company Number: PHHY2011JP104441

PATIENT
  Age: 88 Year
  Sex: Female

DRUGS (7)
  1. CLARITHROMYCIN [Suspect]
     Indication: ATYPICAL MYCOBACTERIAL INFECTION
     Dosage: UNK
     Route: 048
     Dates: start: 20111117, end: 20111117
  2. MUCOSOLVAN [Concomitant]
     Dosage: UNK
     Route: 048
  3. RIFAMPICIN [Suspect]
     Indication: ATYPICAL MYCOBACTERIAL INFECTION
     Dosage: 300 MG, QD
     Route: 048
     Dates: start: 20111117, end: 20111117
  4. CLEANAL [Concomitant]
     Dosage: UNK
     Route: 048
  5. CLARITHROMYCIN [Suspect]
     Dosage: UNK
     Route: 048
     Dates: start: 20111125, end: 20111125
  6. RIFAMPICIN [Suspect]
     Dosage: 300 MG, QD
     Route: 048
     Dates: start: 20111125, end: 20111125
  7. ASTOMIN [Concomitant]
     Dosage: UNK
     Route: 048

REACTIONS (8)
  - BILIRUBINURIA [None]
  - HAEMOLYTIC ANAEMIA [None]
  - PYREXIA [None]
  - LACTIC ACIDOSIS [None]
  - JAUNDICE [None]
  - VOMITING [None]
  - DIARRHOEA [None]
  - HEPATITIS FULMINANT [None]
